FAERS Safety Report 8140596-X (Version None)
Quarter: 2012Q1

REPORT INFORMATION
  Report Type: 
  Country: None (occurrence: None)
  Receive Date: 20120214
  Receipt Date: 20120214
  Transmission Date: 20120608
  Serious: Yes (Other)
  Sender: FDA-Public Use
  Company Number: None

PATIENT
  Sex: Male
  Weight: 114.3065 kg

DRUGS (1)
  1. ACTEMRA [Suspect]
     Indication: RHEUMATOID ARTHRITIS
     Dosage: 800 MG ONE DOSE I.V.
     Route: 042
     Dates: start: 20120112

REACTIONS (1)
  - ANAPHYLACTIC REACTION [None]
